FAERS Safety Report 7133625-3 (Version None)
Quarter: 2010Q4

REPORT INFORMATION
  Report Type: 
  Country: None (occurrence: None)
  Receive Date: 20101202
  Receipt Date: 20101129
  Transmission Date: 20110411
  Serious: Yes (Hospitalization)
  Sender: FDA-Public Use
  Company Number: GB-AMGEN-GBRCT2010006454

PATIENT
  Sex: Male

DRUGS (20)
  1. PANITUMUMAB [Suspect]
     Indication: OESOPHAGEAL CARCINOMA
     Dosage: UNK
     Dates: start: 20100616, end: 20101110
  2. EPIRUBICIN [Suspect]
     Indication: OESOPHAGEAL CARCINOMA
     Dosage: UNK
     Dates: start: 20100616, end: 20101110
  3. OXALIPLATIN [Suspect]
     Indication: OESOPHAGEAL CARCINOMA
     Dosage: UNK
     Dates: start: 20100616, end: 20101110
  4. CAPECITABINE [Suspect]
     Indication: OESOPHAGEAL CARCINOMA
     Dosage: UNK
     Dates: start: 20100616, end: 20101110
  5. IBUPROFEN [Concomitant]
     Dosage: 400 MG, UNK
     Dates: start: 20100801
  6. AMLODIPINE [Concomitant]
     Dosage: 5 MG, QD
     Dates: start: 20050101
  7. ATENOLOL [Concomitant]
     Dosage: 100 MG, QD
     Dates: start: 20050101
  8. SIMVASTATIN [Concomitant]
     Dosage: 40 MG, QD
     Dates: start: 20050101
  9. DOCUSATE [Concomitant]
     Dosage: 100 MG, BID
     Dates: start: 20100101
  10. LANSOPRAZOLE [Concomitant]
     Dosage: 30 MG, UNK
     Dates: start: 20100101
  11. SENNA                              /00142201/ [Concomitant]
     Dosage: 1.5 MG, BID
     Dates: start: 20100101
  12. LACTULOSE [Concomitant]
     Dosage: 5 MG, BID
     Dates: start: 20100101
  13. DOMPERIDONE [Concomitant]
     Dosage: 20 MG, QD
     Dates: start: 20100622
  14. DEXAMETHASONE [Concomitant]
     Dosage: 8 MG, BID
     Dates: start: 20100617
  15. LOPERAMIDE [Concomitant]
     Dosage: 16 MG, QD
     Dates: start: 20100622
  16. ZOPLICONE [Concomitant]
  17. MST                                /00036302/ [Concomitant]
     Dosage: 30 MG, BID
     Dates: start: 20101110
  18. CHLORAMPHENICOL [Concomitant]
     Dosage: UNK
     Route: 047
     Dates: start: 20101020
  19. PYRIDOXINE HCL [Concomitant]
     Dosage: 50 MG, UNK
     Dates: start: 20101101
  20. LYMECYCLINE [Concomitant]
     Dosage: UNK
     Dates: start: 20101110

REACTIONS (3)
  - CULTURE POSITIVE [None]
  - INFECTION [None]
  - LOWER RESPIRATORY TRACT INFECTION [None]
